FAERS Safety Report 16975913 (Version 1)
Quarter: 2019Q4

REPORT INFORMATION
  Report Type: Spontaneous
  Country: US (occurrence: US)
  Receive Date: 20190913
  Receipt Date: 20190913
  Transmission Date: 20200122
  Serious: No
  Sender: FDA-Public Use
  Company Number: None

PATIENT
  Age: 70 Year
  Sex: Male

DRUGS (11)
  1. GLIMPIRIDE [Concomitant]
     Active Substance: GLIMEPIRIDE
  2. METOPROLOL TARTRATE. [Concomitant]
     Active Substance: METOPROLOL TARTRATE
  3. TRADJENTA [Concomitant]
     Active Substance: LINAGLIPTIN
  4. ALFUZOSIN [Concomitant]
     Active Substance: ALFUZOSIN
  5. ALIQUIS [Concomitant]
  6. ESBRIET [Suspect]
     Active Substance: PIRFENIDONE
     Route: 048
     Dates: start: 20190513
  7. OXYBUTI [Concomitant]
  8. PLAVIX [Concomitant]
     Active Substance: CLOPIDOGREL BISULFATE
  9. AMIODARONE [Concomitant]
     Active Substance: AMIODARONE
  10. PANTOPRAZOLE [Concomitant]
     Active Substance: PANTOPRAZOLE
  11. CITRUCEL [Concomitant]
     Active Substance: METHYLCELLULOSE (4000 MPA.S)

REACTIONS (2)
  - Cardiac ablation [None]
  - Therapy cessation [None]

NARRATIVE: CASE EVENT DATE: 20190807
